FAERS Safety Report 21552951 (Version 2)
Quarter: 2022Q4

REPORT INFORMATION
  Report Type: Spontaneous
  Country: US (occurrence: US)
  Receive Date: 20221104
  Receipt Date: 20221209
  Transmission Date: 20230112
  Serious: Yes (Other)
  Sender: FDA-Public Use
  Company Number: US-UNITED THERAPEUTICS-UNT-2022-018746

PATIENT
  Sex: Male
  Weight: 113.38 kg

DRUGS (16)
  1. TYVASO [Suspect]
     Active Substance: TREPROSTINIL
     Indication: Pulmonary arterial hypertension
     Dosage: UNK
     Dates: start: 202207
  2. TYVASO [Suspect]
     Active Substance: TREPROSTINIL
     Dosage: 30 ?G, QID
     Dates: start: 2022, end: 2022
  3. TYVASO [Suspect]
     Active Substance: TREPROSTINIL
     Dosage: 60 ?G, QID
     Dates: start: 2022, end: 2022
  4. TYVASO [Suspect]
     Active Substance: TREPROSTINIL
     Dosage: 72 ?G
     Dates: start: 2022, end: 2022
  5. TYVASO [Suspect]
     Active Substance: TREPROSTINIL
     Dosage: 54 ?G
     Dates: start: 2022, end: 2022
  6. TYVASO [Suspect]
     Active Substance: TREPROSTINIL
     Dosage: 36 ?G
     Dates: start: 2022, end: 2022
  7. TYVASO [Suspect]
     Active Substance: TREPROSTINIL
     Dosage: 54 ?G, QID
     Dates: start: 2022
  8. METOPROLOL [Suspect]
     Active Substance: METOPROLOL
     Indication: Hypertension
     Dosage: UNK
     Route: 065
     Dates: end: 202208
  9. RAYOS [Suspect]
     Active Substance: PREDNISONE
     Indication: Product used for unknown indication
     Dosage: UNK
     Route: 065
  10. RAYOS [Suspect]
     Active Substance: PREDNISONE
     Dosage: 10 MG, QD (WEANED DOWN DOSE)
     Route: 065
  11. LISINOPRIL [Concomitant]
     Active Substance: LISINOPRIL
     Indication: Product used for unknown indication
     Dosage: 20 MG, QD
     Route: 065
  12. TRAZODONE HCL [Concomitant]
     Active Substance: TRAZODONE HYDROCHLORIDE
     Indication: Product used for unknown indication
     Dosage: 50 MG, QHS
     Route: 065
  13. GABAPENTIN [Concomitant]
     Active Substance: GABAPENTIN
     Indication: Product used for unknown indication
     Dosage: 300 MG, TID
     Route: 065
  14. ATORVASTATIN [Concomitant]
     Active Substance: ATORVASTATIN
     Indication: Product used for unknown indication
     Dosage: UNK
     Route: 065
  15. DULOXETINE [Concomitant]
     Active Substance: DULOXETINE
     Indication: Product used for unknown indication
     Dosage: UNK
     Route: 065
  16. APIXABAN [Concomitant]
     Active Substance: APIXABAN
     Indication: Product used for unknown indication
     Dosage: UNK
     Route: 065

REACTIONS (21)
  - Interstitial lung disease [Recovering/Resolving]
  - Hypoxia [Not Recovered/Not Resolved]
  - Syncope [Recovered/Resolved]
  - Loss of consciousness [Recovered/Resolved]
  - Acute kidney injury [Recovering/Resolving]
  - Dehydration [Recovering/Resolving]
  - Pulmonary embolism [Unknown]
  - Dizziness postural [Recovered/Resolved]
  - Muscle spasms [Recovered/Resolved]
  - Dizziness [Recovered/Resolved]
  - Arthralgia [Recovered/Resolved]
  - Pain in extremity [Recovered/Resolved]
  - Condition aggravated [Not Recovered/Not Resolved]
  - Decreased appetite [Not Recovered/Not Resolved]
  - Asthenia [Not Recovered/Not Resolved]
  - Pain [Not Recovered/Not Resolved]
  - Malaise [Recovering/Resolving]
  - Presyncope [Unknown]
  - Fatigue [Unknown]
  - Diarrhoea [Unknown]
  - Osteoarthritis [Unknown]

NARRATIVE: CASE EVENT DATE: 20220101
